FAERS Safety Report 16181924 (Version 5)
Quarter: 2021Q1

REPORT INFORMATION
  Report Type: Spontaneous
  Country: US (occurrence: US)
  Receive Date: 20190410
  Receipt Date: 20210128
  Transmission Date: 20210419
  Serious: No
  Sender: FDA-Public Use
  Company Number: US-BRISTOL-MYERS SQUIBB COMPANY-BMS-2019-036223

PATIENT
  Sex: Male

DRUGS (2)
  1. SPRYCEL [Suspect]
     Active Substance: DASATINIB
     Indication: THROMBOCYTOPENIA
     Dosage: 50 MILLIGRAM, QD
     Route: 048
     Dates: start: 20190205
  2. SPRYCEL [Suspect]
     Active Substance: DASATINIB
     Indication: CHRONIC MYELOID LEUKAEMIA
     Dosage: 50 MILLIGRAM, QD
     Route: 048
     Dates: start: 20161020

REACTIONS (3)
  - Allergic sinusitis [Unknown]
  - Upper respiratory tract infection [Unknown]
  - Sinusitis [Unknown]
